FAERS Safety Report 10285125 (Version 1)
Quarter: 2014Q3

REPORT INFORMATION
  Report Type: Spontaneous
  Country: US (occurrence: US)
  Receive Date: 20140708
  Receipt Date: 20140708
  Transmission Date: 20150326
  Serious: Yes (Other)
  Sender: FDA-Public Use
  Company Number: CHPA2014US009068

PATIENT
  Age: 54 Year
  Sex: Male

DRUGS (5)
  1. EXCEDRIN EXTRA STRENGTH [Suspect]
     Active Substance: ACETAMINOPHEN\ASPIRIN\CAFFEINE
     Indication: PAIN
  2. EXCEDRIN EXTRA STRENGTH [Suspect]
     Active Substance: ACETAMINOPHEN\ASPIRIN\CAFFEINE
     Indication: HEADACHE
     Dosage: 2 DF, UNK
  3. EXCEDRIN EXTRA STRENGTH [Suspect]
     Active Substance: ACETAMINOPHEN\ASPIRIN\CAFFEINE
     Indication: HEADACHE
     Dosage: 2 DF, MAYBE 3X/DAY WHEN NEEDED
     Route: 048
     Dates: start: 20140701
  4. EXCEDRIN MIGRAINE [Suspect]
     Active Substance: ACETAMINOPHEN\ASPIRIN\CAFFEINE
     Indication: MIGRAINE
     Dosage: 2 DF, UNK
  5. NEXIUM [Concomitant]
     Active Substance: ESOMEPRAZOLE MAGNESIUM
     Indication: GASTRIC ULCER
     Dosage: UNK, BID

REACTIONS (9)
  - Migraine [Recovered/Resolved]
  - Drug effect delayed [Unknown]
  - Drug administered to patient of inappropriate age [Unknown]
  - Inappropriate schedule of drug administration [Unknown]
  - Intervertebral disc injury [Not Recovered/Not Resolved]
  - Pain [Not Recovered/Not Resolved]
  - Accident [Not Recovered/Not Resolved]
  - Injury [Not Recovered/Not Resolved]
  - Headache [Not Recovered/Not Resolved]

NARRATIVE: CASE EVENT DATE: 20140701
